FAERS Safety Report 8108184-9 (Version None)
Quarter: 2012Q1

REPORT INFORMATION
  Report Type: 
  Country: None (occurrence: None)
  Receive Date: 20120202
  Receipt Date: 20120130
  Transmission Date: 20120608
  Serious: Yes (Hospitalization, Congenital Anomaly)
  Sender: FDA-Public Use
  Company Number: US-JNJFOC-20111206712

PATIENT
  Sex: Male

DRUGS (1)
  1. TOPAMAX [Suspect]
     Indication: FOETAL EXPOSURE DURING PREGNANCY
     Route: 064
     Dates: start: 20071030, end: 20100319

REACTIONS (8)
  - CLEFT LIP AND PALATE [None]
  - CHRONIC FATIGUE SYNDROME [None]
  - RESPIRATORY DISTRESS [None]
  - ATRIAL SEPTAL DEFECT [None]
  - VENTRICULAR SEPTAL DEFECT [None]
  - EMOTIONAL DISORDER [None]
  - PATENT DUCTUS ARTERIOSUS [None]
  - WEIGHT DECREASED [None]
